FAERS Safety Report 16530374 (Version 1)
Quarter: 2019Q3

REPORT INFORMATION
  Report Type: Spontaneous
  Country: US (occurrence: US)
  Receive Date: 20190522
  Receipt Date: 20190522
  Transmission Date: 20191004
  Serious: Yes (Death, Life-Threatening, Hospitalization, Disabling, Other)
  Sender: FDA-Public Use
  Company Number: None

PATIENT
  Age: 29 Year
  Sex: Male
  Weight: 90.72 kg

DRUGS (8)
  1. TYLENOL [Concomitant]
     Active Substance: ACETAMINOPHEN
  2. RISPERDAL [Suspect]
     Active Substance: RISPERIDONE
     Indication: SCHIZOPHRENIA
     Dosage: ?          QUANTITY:1 MG MILLIGRAM(S);?
     Route: 048
     Dates: start: 201001, end: 20161225
  3. INVEGA SUSTENNA [Suspect]
     Active Substance: PALIPERIDONE PALMITATE
     Dates: start: 201001, end: 20161225
  4. ASPIRIN. [Concomitant]
     Active Substance: ASPIRIN
  5. ABILIFY [Concomitant]
     Active Substance: ARIPIPRAZOLE
  6. WELLBUTRIN [Concomitant]
     Active Substance: BUPROPION HYDROCHLORIDE
  7. SUDIFEDRINE, [Concomitant]
  8. VITAMIN D [Concomitant]
     Active Substance: VITAMIN D NOS

REACTIONS (9)
  - Tremor [None]
  - Unevaluable event [None]
  - Product complaint [None]
  - Suicidal ideation [None]
  - Anger [None]
  - Homicidal ideation [None]
  - Aggression [None]
  - Erectile dysfunction [None]
  - Illness anxiety disorder [None]

NARRATIVE: CASE EVENT DATE: 20100101
